FAERS Safety Report 5284540-1 (Version None)
Quarter: 2007Q1

REPORT INFORMATION
  Report Type: 
  Country: None (occurrence: None)
  Receive Date: 20061226
  Receipt Date: 20060925
  Transmission Date: 20070707
  Serious: No
  Sender: FDA-Public Use
  Company Number: 2006PV021955

PATIENT
  Age: 48 Year
  Sex: Female

DRUGS (1)
  1. SYMLIN [Suspect]
     Indication: DIABETES MELLITUS
     Dosage: SEE IMAGE
     Route: 058
     Dates: start: 20060911

REACTIONS (5)
  - BENIGN LYMPH NODE NEOPLASM [None]
  - COLD SWEAT [None]
  - FATIGUE [None]
  - MYALGIA [None]
  - TREMOR [None]
